FAERS Safety Report 7918471-2 (Version None)
Quarter: 2011Q4

REPORT INFORMATION
  Report Type: 
  Country: None (occurrence: None)
  Receive Date: 20111116
  Receipt Date: 20110916
  Transmission Date: 20120403
  Serious: No
  Sender: FDA-Public Use
  Company Number: US-COVIDIEN/TYCO HEALTHCARE/MALLINCKRODT-T201101810

PATIENT
  Sex: Female

DRUGS (17)
  1. MULTIVITAMIN                       /01229101/ [Concomitant]
     Dosage: UNK
  2. METOPROLOL TARTRATE [Concomitant]
     Indication: HEART RATE IRREGULAR
     Dosage: UNK
  3. FLUTICASONE PROPIONATE [Concomitant]
     Dosage: UNK
  4. GABAPENTIN [Concomitant]
     Indication: SCIATICA
     Dosage: UNK
  5. D3 SOFT GEL [Concomitant]
     Dosage: UNK
  6. HYDROCODONE BITARTRATE AND ACETAMINOPHEN [Concomitant]
     Indication: BREAKTHROUGH PAIN
     Dosage: UNK
  7. IBUPROFEN [Concomitant]
     Dosage: UNK
  8. SYNTHROID [Concomitant]
     Indication: HYPERTHYROIDISM
     Dosage: UNK
  9. NEXIUM [Concomitant]
     Dosage: UNK
  10. LYRICA [Concomitant]
     Dosage: UNK
     Dates: end: 20110915
  11. ASPIRIN [Concomitant]
     Dosage: UNK
  12. FENTANYL-100 [Suspect]
     Indication: BACK PAIN
     Dosage: 75 UG/HR, 1 PATCH Q 48 HOURS
     Route: 062
     Dates: start: 20110601
  13. METOPROLOL TARTRATE [Concomitant]
     Indication: CARDIAC VALVE DISEASE
  14. SERTRALIN                          /01011401/ [Concomitant]
     Indication: ANXIETY
     Dosage: UNK
  15. LECITHIN [Concomitant]
     Dosage: UNK
  16. CALCIUM MAGNESIUM ZINC [Concomitant]
     Dosage: UNK
  17. BLACK COHOSH                       /01456805/ [Concomitant]
     Indication: HOT FLUSH
     Dosage: UNK

REACTIONS (3)
  - DRUG EFFECT DELAYED [None]
  - WITHDRAWAL SYNDROME [None]
  - DRUG EFFECT DECREASED [None]
